FAERS Safety Report 9456861 (Version 1)
Quarter: 2013Q3

REPORT INFORMATION
  Report Type: Spontaneous
  Country: IT (occurrence: IT)
  Receive Date: 20130813
  Receipt Date: 20130813
  Transmission Date: 20140515
  Serious: Yes (Other)
  Sender: FDA-Public Use
  Company Number: IT-ACTAVIS-2013-14336

PATIENT
  Age: 65 Year
  Sex: Male

DRUGS (5)
  1. IRINOTECAN HYDROCHLORIDE (UNKNOWN) [Suspect]
     Indication: RECTAL CANCER
     Dosage: 30 MG,/1 TRIMESTER
     Route: 042
     Dates: start: 20130201, end: 20130316
  2. FLUOROURACIL (UNKNOWN) [Suspect]
     Indication: RECTAL CANCER
     Dosage: 4760 MG / 1 TRIMESTER
     Route: 042
     Dates: start: 20130202, end: 20130511
  3. AVASTIN /01555201/ [Suspect]
     Indication: RECTAL CANCER
     Dosage: 325 MG/ 1 TRIMESTER
     Route: 042
     Dates: start: 20130216, end: 20130316
  4. LOPRESOR                           /00376902/ [Concomitant]
     Indication: HYPERTENSION
     Route: 065
  5. MICARDIS [Concomitant]
     Indication: HYPERTENSION
     Route: 065

REACTIONS (5)
  - Blood pressure increased [Recovering/Resolving]
  - Haematochezia [Recovering/Resolving]
  - Asthenia [Recovering/Resolving]
  - Diarrhoea [Recovering/Resolving]
  - Abdominal pain [Recovering/Resolving]
